FAERS Safety Report 15592613 (Version 1)
Quarter: 2018Q4

REPORT INFORMATION
  Report Type: Spontaneous
  Country: AR (occurrence: AR)
  Receive Date: 20181106
  Receipt Date: 20181106
  Transmission Date: 20190205
  Serious: Yes (Hospitalization)
  Sender: FDA-Public Use
  Company Number: AR-BIOGEN-2018BI00654946

PATIENT
  Age: 31 Year
  Sex: Male

DRUGS (1)
  1. TYSABRI [Suspect]
     Active Substance: NATALIZUMAB
     Indication: MULTIPLE SCLEROSIS
     Dosage: INFUSED FOR OVER 1 HOUR
     Route: 042
     Dates: start: 20130726

REACTIONS (3)
  - Muscular weakness [Not Recovered/Not Resolved]
  - Multifocal motor neuropathy [Not Recovered/Not Resolved]
  - Lewis-Sumner syndrome [Not Recovered/Not Resolved]

NARRATIVE: CASE EVENT DATE: 20180901
